FAERS Safety Report 24299278 (Version 1)
Quarter: 2024Q3

REPORT INFORMATION
  Report Type: Spontaneous
  Country: CA (occurrence: CA)
  Receive Date: 20240909
  Receipt Date: 20240909
  Transmission Date: 20241017
  Serious: Yes (Life-Threatening, Hospitalization)
  Sender: B BRAUN
  Company Number: CA-B.Braun Medical Inc.-2161392

PATIENT
  Age: 3 Year
  Sex: Male

DRUGS (8)
  1. HEPARIN SODIUM IN DEXTROSE [Suspect]
     Active Substance: HEPARIN SODIUM
  2. DEXAMETHASONE [Concomitant]
     Active Substance: DEXAMETHASONE
  3. SEVOFLURANE [Concomitant]
     Active Substance: SEVOFLURANE
  4. ROCURONIUM [Concomitant]
     Active Substance: ROCURONIUM BROMIDE
  5. REMIFENTANIL [Concomitant]
     Active Substance: REMIFENTANIL
  6. PROPOFOL [Concomitant]
     Active Substance: PROPOFOL
  7. MIDAZOLAM [Concomitant]
     Active Substance: MIDAZOLAM
  8. FENTANYL [Concomitant]
     Active Substance: FENTANYL\FENTANYL CITRATE

REACTIONS (3)
  - Airway peak pressure increased [Recovered/Resolved]
  - Oxygen saturation decreased [Recovered/Resolved]
  - Angioedema [Recovered/Resolved]
